FAERS Safety Report 13422407 (Version 1)
Quarter: 2017Q2

REPORT INFORMATION
  Report Type: Spontaneous
  Country: US (occurrence: US)
  Receive Date: 20170409
  Receipt Date: 20170409
  Transmission Date: 20170830
  Serious: Yes (Disabling)
  Sender: FDA-Public Use
  Company Number: None

PATIENT
  Age: 31 Year
  Sex: Female

DRUGS (1)
  1. CEFDINIR. [Suspect]
     Active Substance: CEFDINIR
     Indication: SINUSITIS
     Dosage: ?          QUANTITY:1 CAPSULE(S); EVERY 12 HOURS ORAL?
     Route: 048
     Dates: start: 20170321, end: 20170330

REACTIONS (3)
  - Diarrhoea [None]
  - Clostridium test positive [None]
  - Abdominal pain upper [None]

NARRATIVE: CASE EVENT DATE: 20170401
